FAERS Safety Report 5480628-0 (Version None)
Quarter: 2007Q4

REPORT INFORMATION
  Report Type: 
  Country: None (occurrence: None)
  Receive Date: 20071009
  Receipt Date: 20071002
  Transmission Date: 20080405
  Serious: Yes (Hospitalization)
  Sender: FDA-Public Use
  Company Number: US-JNJFOC-20071001070

PATIENT

DRUGS (1)
  1. LEVAQUIN [Suspect]
     Indication: PROPHYLAXIS
     Route: 048

REACTIONS (2)
  - PNEUMONIA [None]
  - RASH MACULAR [None]
